FAERS Safety Report 8578535-X (Version None)
Quarter: 2012Q3

REPORT INFORMATION
  Report Type: 
  Country: None (occurrence: None)
  Receive Date: 20120731
  Receipt Date: 20120731
  Transmission Date: 20120928
  Serious: Yes (Other)
  Sender: FDA-Public Use
  Company Number: None

PATIENT
  Age: 53 Year
  Sex: Male
  Weight: 102 kg

DRUGS (1)
  1. HEPARIN [Suspect]
     Indication: CARDIOPULMONARY BYPASS
     Dosage: 40,000 UNITS +10,000 UNITS ONCE INTRA-ARTERIAL
     Route: 013
     Dates: start: 20120714, end: 20120714

REACTIONS (2)
  - COAGULATION TIME SHORTENED [None]
  - PRODUCT MEASURED POTENCY ISSUE [None]
